FAERS Safety Report 16473310 (Version 3)
Quarter: 2019Q3

REPORT INFORMATION
  Report Type: Spontaneous
  Country: JP (occurrence: JP)
  Receive Date: 20190625
  Receipt Date: 20190724
  Transmission Date: 20191004
  Serious: Yes (Other)
  Sender: FDA-Public Use
  Company Number: JP-ROCHE-2343799

PATIENT
  Age: 13 Year
  Sex: Male

DRUGS (4)
  1. RITUXAN [Concomitant]
     Active Substance: RITUXIMAB
     Indication: NEPHROTIC SYNDROME
     Dosage: DOSAGE IS UNCERTAIN.
     Route: 041
  2. CELLCEPT [Suspect]
     Active Substance: MYCOPHENOLATE MOFETIL\MYCOPHENOLATE MOFETIL HYDROCHLORIDE
     Indication: NEPHROTIC SYNDROME
     Dosage: DOSAGE IS UNCERTAIN.
     Route: 048
  3. RITUXAN [Concomitant]
     Active Substance: RITUXIMAB
     Indication: OFF LABEL USE
  4. CELLCEPT [Suspect]
     Active Substance: MYCOPHENOLATE MOFETIL\MYCOPHENOLATE MOFETIL HYDROCHLORIDE
     Indication: OFF LABEL USE

REACTIONS (4)
  - Varicella [Recovering/Resolving]
  - Off label use [Unknown]
  - Cataract [Unknown]
  - Intentional product use issue [Unknown]
